FAERS Safety Report 16045526 (Version 5)
Quarter: 2020Q3

REPORT INFORMATION
  Report Type: Spontaneous
  Country: US (occurrence: US)
  Receive Date: 20190307
  Receipt Date: 20200728
  Transmission Date: 20201102
  Serious: No
  Sender: FDA-Public Use
  Company Number: US-BRISTOL-MYERS SQUIBB COMPANY-BMS-2019-023032

PATIENT
  Sex: Female
  Weight: 67.6 kg

DRUGS (3)
  1. REMODULIN [Suspect]
     Active Substance: TREPROSTINIL
     Indication: PULMONARY ARTERIAL HYPERTENSION
     Dosage: 1 DF, UNK (CONTINOUS)
     Route: 058
     Dates: start: 20180718
  2. REVATIO [Concomitant]
     Active Substance: SILDENAFIL CITRATE
     Indication: PRODUCT USED FOR UNKNOWN INDICATION
     Dosage: UNK
     Route: 065
  3. WARFARIN SODIUM. [Suspect]
     Active Substance: WARFARIN SODIUM
     Indication: PRODUCT USED FOR UNKNOWN INDICATION
     Dosage: UNK
     Route: 065

REACTIONS (8)
  - Infusion site bruising [Unknown]
  - Infusion site haemorrhage [Unknown]
  - Infusion site discomfort [Unknown]
  - Infusion site atrophy [Unknown]
  - Infusion site swelling [Unknown]
  - Infusion site pain [Unknown]
  - Decreased appetite [Unknown]
  - Anxiety [Unknown]
